FAERS Safety Report 7213432-3 (Version None)
Quarter: 2010Q4

REPORT INFORMATION
  Report Type: 
  Country: None (occurrence: None)
  Receive Date: 20101126
  Receipt Date: 20101018
  Transmission Date: 20110411
  Serious: No
  Sender: FDA-Public Use
  Company Number: 317367

PATIENT
  Age: 60 Year
  Sex: Male

DRUGS (7)
  1. VICTOZA [Suspect]
     Indication: TYPE 2 DIABETES MELLITUS
     Dosage: 1.2 MG, QD, SUBCUTANEOUS ; 0.6 MG, QD, SUBCUTANEOUS
     Route: 058
     Dates: start: 20101007
  2. VICTOZA [Suspect]
     Indication: TYPE 2 DIABETES MELLITUS
     Dosage: 1.2 MG, QD, SUBCUTANEOUS ; 0.6 MG, QD, SUBCUTANEOUS
     Route: 058
     Dates: start: 20101030
  3. METFORMIN (METFORMIN) [Concomitant]
  4. ASPIRIN [Concomitant]
  5. GLIMEPIRIDE [Concomitant]
  6. TENORETIC 100 [Concomitant]
  7. ATENOLOL [Concomitant]

REACTIONS (2)
  - MUSCULOSKELETAL STIFFNESS [None]
  - NECK PAIN [None]
